FAERS Safety Report 25921094 (Version 1)
Quarter: 2025Q4

REPORT INFORMATION
  Report Type: Spontaneous
  Country: US (occurrence: US)
  Receive Date: 20251014
  Receipt Date: 20251014
  Transmission Date: 20260117
  Serious: No
  Sender: FRESENIUS MEDICAL CARE
  Company Number: US-FMCRTG-FMC-2509-001433

PATIENT
  Sex: Male

DRUGS (1)
  1. DELFLEX WITH DEXTROSE 1.5% LOW MAGNESIUM LOW CALCIUM [Suspect]
     Active Substance: CALCIUM CHLORIDE\DEXTROSE\MAGNESIUM CHLORIDE\SODIUM CHLORIDE\SODIUM LACTATE
     Indication: End stage renal disease
     Dosage: FILLS = 3; FILL VOLUME = 1500ML; LAST FILL VOLUME = 0ML; TOTAL VOLUME = 4500ML; TOTAL SLEEP TIME = 7
     Route: 033

REACTIONS (1)
  - Hernia [Unknown]
